FAERS Safety Report 15089175 (Version 1)
Quarter: 2018Q2

REPORT INFORMATION
  Report Type: Spontaneous
  Country: US (occurrence: US)
  Receive Date: 20180629
  Receipt Date: 20180629
  Transmission Date: 20180711
  Serious: No
  Sender: FDA-Public Use
  Company Number: US-SA-2018SA170272

PATIENT
  Age: 42 Year
  Sex: Female

DRUGS (1)
  1. NASACORT ALLERGY 24HR [Suspect]
     Active Substance: TRIAMCINOLONE ACETONIDE
     Indication: HYPERSENSITIVITY
     Dosage: 55 UG, QD
     Dates: start: 201804

REACTIONS (4)
  - Headache [Unknown]
  - Sinusitis [Unknown]
  - Pain [Unknown]
  - Epistaxis [Unknown]

NARRATIVE: CASE EVENT DATE: 20180613
